FAERS Safety Report 10378477 (Version 1)
Quarter: 2014Q3

REPORT INFORMATION
  Report Type: Other
  Country: GB (occurrence: GB)
  Receive Date: 20140812
  Receipt Date: 20140812
  Transmission Date: 20150326
  Serious: Yes (Death, Hospitalization)
  Sender: FDA-Public Use
  Company Number: GB-MYLAN-2014M1000403

PATIENT

DRUGS (18)
  1. WARFARIN [Concomitant]
     Active Substance: WARFARIN
  2. IVABRADINE [Suspect]
     Active Substance: IVABRADINE
     Route: 048
     Dates: start: 20140630
  3. DOXYCYCLINE. [Concomitant]
     Active Substance: DOXYCYCLINE
  4. AZITHROMYCIN [Suspect]
     Active Substance: AZITHROMYCIN ANHYDROUS
     Route: 048
     Dates: start: 20130630
  5. LORATADINE. [Concomitant]
     Active Substance: LORATADINE
  6. NITROLINGUAL [Concomitant]
     Active Substance: NITROGLYCERIN
  7. OMEPRAZOLE. [Concomitant]
     Active Substance: OMEPRAZOLE
  8. SERETIDE [Concomitant]
     Active Substance: FLUTICASONE FUROATE\SALMETEROL XINAFOATE
  9. SPIRONOLACTONE. [Concomitant]
     Active Substance: SPIRONOLACTONE
  10. BUMETANIDE. [Concomitant]
     Active Substance: BUMETANIDE
  11. SIMVASTATIN. [Concomitant]
     Active Substance: SIMVASTATIN
  12. SPIRIVA [Concomitant]
     Active Substance: TIOTROPIUM BROMIDE MONOHYDRATE
  13. BISOPROLOL [Concomitant]
     Active Substance: BISOPROLOL
  14. FLUCLOXACILLIN [Concomitant]
     Active Substance: FLUCLOXACILLIN
  15. PERINDOPRIL [Concomitant]
     Active Substance: PERINDOPRIL
  16. NICORANDIL [Concomitant]
     Active Substance: NICORANDIL
  17. PREDNISOLONE. [Concomitant]
     Active Substance: PREDNISOLONE
  18. VENTOLIN [Concomitant]
     Active Substance: ALBUTEROL SULFATE

REACTIONS (2)
  - Death [Fatal]
  - Arrhythmia [Not Recovered/Not Resolved]
